FAERS Safety Report 9724854 (Version 1)
Quarter: 2013Q4

REPORT INFORMATION
  Report Type: Spontaneous
  Country: US (occurrence: US)
  Receive Date: 20131202
  Receipt Date: 20131202
  Transmission Date: 20140711
  Serious: Yes (Hospitalization, Other)
  Sender: FDA-Public Use
  Company Number: US-ABBVIE-13P-163-1173385-00

PATIENT
  Age: 24 Year
  Sex: Female
  Weight: 56.75 kg

DRUGS (17)
  1. HUMIRA [Suspect]
     Indication: CROHN^S DISEASE
     Dates: start: 201306, end: 201306
  2. HUMIRA [Suspect]
     Dates: start: 201307, end: 201307
  3. REMICADE [Concomitant]
     Indication: CROHN^S DISEASE
  4. METHOTREXATE [Concomitant]
     Indication: CROHN^S DISEASE
  5. TRAMADOL [Concomitant]
     Indication: PAIN
     Dosage: AS NEEDED
  6. NORCO [Concomitant]
     Indication: PAIN
     Dosage: AS NEEDED
  7. ALBUTEROL [Concomitant]
     Indication: ASTHMA
  8. ADVAIR [Concomitant]
     Indication: ASTHMA
  9. ZOFRAN [Concomitant]
     Indication: NAUSEA
  10. IMODIUM [Concomitant]
     Indication: DIARRHOEA
  11. FOLIC ACID [Concomitant]
     Indication: VITAMIN SUPPLEMENTATION
  12. NEXIUM [Concomitant]
     Indication: GASTROOESOPHAGEAL REFLUX DISEASE
  13. DUKE MAGIC MOUTHWASH [Concomitant]
     Indication: STOMATITIS
  14. IRON [Concomitant]
     Indication: ANAEMIA
  15. BENADRYL [Concomitant]
     Indication: PROPHYLAXIS
  16. BENADRYL [Concomitant]
     Indication: TRANSFUSION
  17. LOVENOX [Concomitant]
     Indication: PROPHYLAXIS
     Dates: start: 201307, end: 201307

REACTIONS (14)
  - Diastolic dysfunction [Unknown]
  - Body temperature increased [Recovered/Resolved]
  - Tremor [Recovered/Resolved]
  - Heart rate increased [Recovered/Resolved]
  - Blood pressure increased [Unknown]
  - Cardiac disorder [Unknown]
  - Osteomyelitis [Recovered/Resolved]
  - Meningitis [Recovered/Resolved]
  - Abdominal pain [Recovered/Resolved]
  - Diarrhoea [Recovered/Resolved]
  - Nausea [Recovered/Resolved]
  - Vomiting [Recovered/Resolved]
  - Fistula [Unknown]
  - Perirectal abscess [Recovered/Resolved]
